FAERS Safety Report 8812503 (Version 3)
Quarter: 2013Q2

REPORT INFORMATION
  Report Type: Spontaneous
  Country: US (occurrence: US)
  Receive Date: 20120927
  Receipt Date: 20130418
  Transmission Date: 20140414
  Serious: Yes (Hospitalization, Other)
  Sender: FDA-Public Use
  Company Number: US-ROCHE-1138225

PATIENT
  Age: 65 Year
  Sex: Male
  Weight: 107.6 kg

DRUGS (1)
  1. ZELBORAF [Suspect]
     Indication: MALIGNANT MELANOMA
     Route: 048
     Dates: start: 20110917

REACTIONS (3)
  - Brain neoplasm malignant [Recovered/Resolved]
  - Craniotomy [Recovered/Resolved]
  - Fatigue [Unknown]
